FAERS Safety Report 16371919 (Version 1)
Quarter: 2019Q3

REPORT INFORMATION
  Report Type: Spontaneous
  Country: US (occurrence: US)
  Receive Date: 20190529
  Receipt Date: 20190529
  Transmission Date: 20191004
  Serious: Yes (Hospitalization)
  Sender: FDA-Public Use
  Company Number: None

PATIENT
  Age: 47 Year
  Sex: Female

DRUGS (4)
  1. VELTASSA, ELIQUIS, LEVEMIR, NOVOLOG, MIDODRINE [Concomitant]
  2. SENSIPAR [Suspect]
     Active Substance: CINACALCET HYDROCHLORIDE
     Indication: HYPERKALAEMIA
     Route: 048
     Dates: start: 20151130
  3. METOPROL, LIDO/PRILOCIN, PREDNISONE, ACETAMIN, LORATADINE, SPS [Concomitant]
  4. RENAGEL, RENAL, OMEPRAZOLE, ARANESP, CALCITRIOL, SIMVASTATIN, NEURONTI [Concomitant]

REACTIONS (2)
  - Limb discomfort [None]
  - Hospitalisation [None]

NARRATIVE: CASE EVENT DATE: 20190528
